FAERS Safety Report 5291223-0 (Version None)
Quarter: 2007Q2

REPORT INFORMATION
  Report Type: 
  Country: None (occurrence: None)
  Receive Date: 20070409
  Receipt Date: 20070402
  Transmission Date: 20071010
  Serious: Yes (Other)
  Sender: FDA-Public Use
  Company Number: US-PFIZER INC-2006116950

PATIENT
  Sex: Male
  Weight: 59 kg

DRUGS (1)
  1. BEXTRA [Suspect]
     Indication: INTERVERTEBRAL DISC PROTRUSION
     Dosage: TEXT:UNKNOWN
     Route: 048
     Dates: start: 20040426, end: 20041220

REACTIONS (5)
  - ARTERIOSCLEROSIS [None]
  - BLOOD CHOLESTEROL INCREASED [None]
  - HYPERTENSION [None]
  - LACUNAR INFARCTION [None]
  - MYOCARDIAL INFARCTION [None]
